FAERS Safety Report 7270770-6 (Version None)
Quarter: 2011Q1

REPORT INFORMATION
  Report Type: 
  Country: None (occurrence: None)
  Receive Date: 20110202
  Receipt Date: 20110128
  Transmission Date: 20110831
  Serious: Yes (Other)
  Sender: FDA-Public Use
  Company Number: US-PFIZER INC-2010157146

PATIENT
  Sex: Male

DRUGS (1)
  1. CHANTIX [Suspect]
     Indication: SMOKING CESSATION THERAPY
     Dosage: STARTER PACK
     Dates: start: 20080101, end: 20080101

REACTIONS (11)
  - SUICIDAL IDEATION [None]
  - DEPRESSION [None]
  - AMNESIA [None]
  - MENTAL DISORDER [None]
  - AFFECTIVE DISORDER [None]
  - AGGRESSION [None]
  - PANIC ATTACK [None]
  - DISSOCIATION [None]
  - ANXIETY DISORDER [None]
  - SOCIAL AVOIDANT BEHAVIOUR [None]
  - PARANOIA [None]
